FAERS Safety Report 5212002-6 (Version None)
Quarter: 2007Q1

REPORT INFORMATION
  Report Type: 
  Country: None (occurrence: None)
  Receive Date: 20070118
  Receipt Date: 20070112
  Transmission Date: 20070707
  Serious: Yes (Death, Hospitalization)
  Sender: FDA-Public Use
  Company Number: FR-GLAXOSMITHKLINE-B0454257A

PATIENT
  Age: 72 Year
  Sex: Male
  Weight: 52 kg

DRUGS (13)
  1. AUGMENTIN '125' [Suspect]
     Dosage: 1G TWICE PER DAY
     Route: 042
     Dates: start: 20061123, end: 20061127
  2. TARDYFERON [Suspect]
     Dosage: 1UNIT TWICE PER DAY
     Route: 048
     Dates: start: 20061121, end: 20061128
  3. HEPARIN SODIUM INJECTION [Suspect]
     Dosage: 10IU3 PER DAY
     Route: 042
     Dates: start: 20061121, end: 20061124
  4. INIPOMP [Suspect]
     Dosage: 40MG PER DAY
     Route: 042
     Dates: start: 20061121, end: 20061124
  5. FLUDROCORTISONE ACETATE [Suspect]
     Dosage: 50MCG PER DAY
     Route: 048
     Dates: start: 20061122, end: 20061126
  6. NORADRENALINE [Suspect]
     Route: 042
     Dates: start: 20061121, end: 20061125
  7. NICARDIPINE HCL [Concomitant]
     Route: 065
  8. ASPIRIN [Concomitant]
     Route: 065
  9. SPECIAFOLDINE [Concomitant]
     Route: 065
  10. TAHOR [Concomitant]
     Route: 065
  11. UMULINE [Concomitant]
     Route: 065
     Dates: start: 20061107
  12. TRIATEC [Concomitant]
  13. CLAFORAN [Concomitant]
     Indication: LUNG INFECTION

REACTIONS (3)
  - HYPERTHERMIA [None]
  - SEPTIC SHOCK [None]
  - THROMBOCYTOPENIA [None]
